FAERS Safety Report 13043249 (Version 1)
Quarter: 2016Q4

REPORT INFORMATION
  Report Type: Spontaneous
  Country: US (occurrence: US)
  Receive Date: 20161219
  Receipt Date: 20161219
  Transmission Date: 20170207
  Serious: Yes (Hospitalization)
  Sender: FDA-Public Use
  Company Number: US-TEVA-721285USA

PATIENT
  Age: 76 Year
  Sex: Female

DRUGS (1)
  1. BACLOFEN. [Suspect]
     Active Substance: BACLOFEN
     Indication: SUICIDE ATTEMPT
     Dosage: 40 TABLETS
     Route: 048

REACTIONS (7)
  - Suicide attempt [Recovered/Resolved]
  - Nervous system disorder [Recovered/Resolved]
  - Seizure [Recovered/Resolved]
  - Sinus bradycardia [Recovered/Resolved]
  - Mental status changes [Recovered/Resolved]
  - Hypotension [Recovered/Resolved]
  - Overdose [Recovered/Resolved]
